FAERS Safety Report 23063574 (Version 1)
Quarter: 2023Q4

REPORT INFORMATION
  Report Type: Spontaneous
  Country: US (occurrence: US)
  Receive Date: 20231013
  Receipt Date: 20231013
  Transmission Date: 20240110
  Serious: Yes (Other)
  Sender: FDA-Public Use
  Company Number: US-PFIZER INC-202300100340

PATIENT
  Age: 56 Year
  Sex: Female

DRUGS (8)
  1. DOCETAXEL [Suspect]
     Active Substance: DOCETAXEL
     Indication: Non-small cell lung cancer metastatic
     Dosage: 60 MG, CYCLIC (EVERY 3 WEEKS, C1-C2)
     Dates: start: 20180913, end: 201810
  2. DOCETAXEL [Suspect]
     Active Substance: DOCETAXEL
     Dosage: 110 MG, CYCLIC (EVERY 3 WEEKS, C3-C7)
     Dates: start: 201810, end: 2019
  3. DOCETAXEL [Suspect]
     Active Substance: DOCETAXEL
     Dosage: 120 MG, CYCLIC (EVERY 3 WEEKS, C8-C10)
     Dates: start: 2019, end: 2019
  4. DOCETAXEL [Suspect]
     Active Substance: DOCETAXEL
     Dosage: UNK, CYCLIC (EVERY 3 WEEKS, C11-C12)
     Dates: start: 2019, end: 20190425
  5. CISPLATIN [Concomitant]
     Active Substance: CISPLATIN
     Indication: Chemotherapy
     Dosage: UNK
  6. PEMETREXED [Concomitant]
     Active Substance: PEMETREXED
     Indication: Chemotherapy
     Dosage: UNK
  7. PEMBROLIZUMAB [Concomitant]
     Active Substance: PEMBROLIZUMAB
     Indication: Chemotherapy
     Dosage: UNK
  8. RAMUCIRUMAB [Concomitant]
     Active Substance: RAMUCIRUMAB
     Indication: Chemotherapy
     Dosage: UNK

REACTIONS (3)
  - Lacrimation increased [Not Recovered/Not Resolved]
  - Dacryostenosis acquired [Not Recovered/Not Resolved]
  - Depression [Unknown]

NARRATIVE: CASE EVENT DATE: 20181101
